FAERS Safety Report 15419818 (Version 2)
Quarter: 2020Q2

REPORT INFORMATION
  Report Type: Spontaneous
  Country: GB (occurrence: GB)
  Receive Date: 20180924
  Receipt Date: 20200427
  Transmission Date: 20200713
  Serious: Yes (Disabling)
  Sender: FDA-Public Use
  Company Number: PHHY2018GB104242

PATIENT
  Age: 74 Year
  Sex: Male
  Weight: 71 kg

DRUGS (11)
  1. ATORVASTATIN [Concomitant]
     Active Substance: ATORVASTATIN
     Indication: PRODUCT USED FOR UNKNOWN INDICATION
     Dosage: 1 DF, (UG/LITRE) QD
     Route: 065
     Dates: start: 20180320
  2. TAMSULOSIN HYDROCHLORIDE. [Concomitant]
     Active Substance: TAMSULOSIN HYDROCHLORIDE
     Indication: PRODUCT USED FOR UNKNOWN INDICATION
     Route: 065
     Dates: start: 20190524, end: 20200107
  3. CLARITHROMYCIN. [Concomitant]
     Active Substance: CLARITHROMYCIN
     Indication: PRODUCT USED FOR UNKNOWN INDICATION
     Dosage: 1 DF, (UG/LITRE) BID
     Route: 065
     Dates: start: 20180822, end: 20180829
  4. SILDENAFIL. [Concomitant]
     Active Substance: SILDENAFIL
     Indication: PRODUCT USED FOR UNKNOWN INDICATION
     Dosage: UNK, PRN
     Route: 065
     Dates: start: 20180626, end: 20180630
  5. LANSOPRAZOLE. [Concomitant]
     Active Substance: LANSOPRAZOLE
     Indication: PRODUCT USED FOR UNKNOWN INDICATION
     Dosage: 1 DF, (UG/LITRE) QD
     Route: 065
     Dates: start: 20180423
  6. ACETYLSALICYLIC ACID [Concomitant]
     Active Substance: ASPIRIN
     Indication: PRODUCT USED FOR UNKNOWN INDICATION
     Dosage: 1 DF, (UG/LITER) QD
     Route: 065
     Dates: start: 20171031
  7. RAMIPRIL. [Concomitant]
     Active Substance: RAMIPRIL
     Indication: PRODUCT USED FOR UNKNOWN INDICATION
     Dosage: 1 DF, (UG/LITRE) QD
     Route: 065
     Dates: start: 20180320
  8. PHENOXYMETHYLPENICILLIN BENZATHINE [Suspect]
     Active Substance: PENICILLIN V BENZATHINE
     Indication: PRODUCT USED FOR UNKNOWN INDICATION
     Dosage: 250 MG
     Route: 065
  9. COCODAMOL [Concomitant]
     Active Substance: ACETAMINOPHEN\CODEINE PHOSPHATE
     Indication: PRODUCT USED FOR UNKNOWN INDICATION
     Dosage: UNK UNK, (TAKE 1 OR 2 4 TIMES/DAY) QD
     Route: 065
     Dates: start: 20180626, end: 20180726
  10. PHENOXYMETHYLPENICILLIN BENZATHINE [Suspect]
     Active Substance: PENICILLIN V BENZATHINE
     Dosage: 250 MG
     Route: 065
     Dates: start: 20200115
  11. IBUPROFEN. [Concomitant]
     Active Substance: IBUPROFEN
     Indication: PRODUCT USED FOR UNKNOWN INDICATION
     Dosage: UNK, (APPLY 3 TO 4 TIMES/DAY) QD
     Route: 065
     Dates: start: 20180718, end: 20180817

REACTIONS (4)
  - Dyspnoea [Unknown]
  - Dyspnoea [Not Recovered/Not Resolved]
  - Pharyngeal swelling [Unknown]
  - Rash [Unknown]

NARRATIVE: CASE EVENT DATE: 20180904
